FAERS Safety Report 9511234 (Version 2)
Quarter: 2013Q3

REPORT INFORMATION
  Report Type: Spontaneous
  Country: US (occurrence: None)
  Receive Date: 20130906
  Receipt Date: 20130919
  Transmission Date: 20140515
  Serious: Yes (Other)
  Sender: FDA-Public Use
  Company Number: AUR-APL-2013-07420

PATIENT
  Age: 68 Year
  Sex: Male
  Weight: 93.4 kg

DRUGS (6)
  1. METOPROLOL (METOPROLOL) [Suspect]
     Indication: HYPERTENSION
     Dosage: 100 MG (100 MD, 1 IN 1 D), UNKNOWN
  2. SUTENT [Suspect]
     Indication: RENAL CANCER
     Dosage: 50 MG (50 MG, 1 IN 1 D), UNKNOWN
     Dates: start: 20130823
  3. NIFEDIPINE [Suspect]
     Indication: HYPERTENSION
     Dosage: 60 MG (60 MG, 1 IN 1 D), UNKNOWN
  4. HYDRALAZINE (HYDRALAZINE) [Suspect]
     Indication: HYPERTENSION
     Dosage: (50 MG), UNKNOWN
  5. GEMFIBROZIL (GEMFIBROZIL) [Concomitant]
  6. ATORVASTATIN (ATORVASTATIN) [Concomitant]

REACTIONS (9)
  - Metastases to central nervous system [None]
  - Somnolence [None]
  - No therapeutic response [None]
  - Hypertension [None]
  - Renal cancer [None]
  - Malignant neoplasm progression [None]
  - Metastases to lung [None]
  - Metastases to thyroid [None]
  - Metastases to abdominal cavity [None]
